FAERS Safety Report 4275395-2 (Version None)
Quarter: 2004Q1

REPORT INFORMATION
  Report Type: 
  Country: None (occurrence: None)
  Receive Date: 20040116
  Receipt Date: 20040109
  Transmission Date: 20041129
  Serious: Yes (Other)
  Sender: FDA-Public Use
  Company Number: 2003-12-1234

PATIENT
  Age: 34 Year
  Sex: Female
  Weight: 97.5234 kg

DRUGS (1)
  1. CLARITIN-D 24 HOUR [Suspect]
     Indication: SINUSITIS
     Dosage: 1 TABLET ORAL
     Route: 048
     Dates: start: 20031208, end: 20031208

REACTIONS (6)
  - DELUSION [None]
  - DRUG INEFFECTIVE [None]
  - FEELING ABNORMAL [None]
  - HEART RATE INCREASED [None]
  - INSOMNIA [None]
  - PALPITATIONS [None]
